FAERS Safety Report 8408648 (Version 2)
Quarter: 2013Q2

REPORT INFORMATION
  Report Type: Spontaneous
  Country: US (occurrence: None)
  Receive Date: 20111227
  Receipt Date: 20120426
  Transmission Date: 20140414
  Serious: Yes (Other)
  Sender: FDA-Public Use
  Company Number: PHEH2011US07702

PATIENT
  Age: 57 Year
  Sex: Female

DRUGS (1)
  1. GILENYA [Suspect]
     Indication: MULTIPLE SCLEROSIS
     Dosage: 0.5 MG, QD, ORAL
     Route: 048
     Dates: start: 201010

REACTIONS (5)
  - HAEMORRHAGE SUBCUTANEOUS [None]
  - BACK PAIN [None]
  - Liver function test abnormal [None]
  - Cough [None]
  - Inappropriate schedule of drug administration [None]
